FAERS Safety Report 4475970-6 (Version None)
Quarter: 2004Q4

REPORT INFORMATION
  Report Type: 
  Country: None (occurrence: None)
  Receive Date: 20041012
  Receipt Date: 20040906
  Transmission Date: 20050328
  Serious: No
  Sender: FDA-Public Use
  Company Number: 2004AC00287

PATIENT
  Age: 70 Year
  Sex: Male

DRUGS (12)
  1. PROPOFOL [Suspect]
     Indication: SEDATION
     Dosage: 30 UG/KG /MIN IV
     Route: 042
  2. LOSARTAN POTASSIUM [Concomitant]
  3. METFORMIN HCL [Concomitant]
  4. AMLODIPINE [Concomitant]
  5. CALCIUM GLUCONATE [Concomitant]
  6. PANTOPRAZOLE [Concomitant]
  7. HEPARIN [Concomitant]
  8. DOPAMINE HCL [Concomitant]
  9. MAGNESIUM SULFATE [Concomitant]
  10. AMIKACIN [Concomitant]
  11. PIPERACILLIN-TAZOBACTIAM [Concomitant]
  12. INSULIN [Concomitant]

REACTIONS (6)
  - BLOOD CALCIUM DECREASED [None]
  - BLOOD PRESSURE DECREASED [None]
  - ESCHERICHIA INFECTION [None]
  - HYPERTRIGLYCERIDAEMIA [None]
  - PANCREATITIS ACUTE [None]
  - UROSEPSIS [None]
